FAERS Safety Report 9926153 (Version 1)
Quarter: 2014Q1

REPORT INFORMATION
  Report Type: Spontaneous
  Country: DE (occurrence: DE)
  Receive Date: 20140226
  Receipt Date: 20140226
  Transmission Date: 20141002
  Serious: Yes (Other)
  Sender: FDA-Public Use
  Company Number: DE-ASTRAZENECA-2014SE11782

PATIENT
  Age: 28 Year
  Sex: Female

DRUGS (1)
  1. ASCOTOP [Suspect]
     Indication: MIGRAINE
     Dosage: AS REQUIRED TWO TIMES A WEEK IF THE MIGRAINE IS PRESENT
     Route: 045
     Dates: start: 2008

REACTIONS (3)
  - Renal impairment [Unknown]
  - Proteinuria [Unknown]
  - Blood creatinine decreased [Unknown]
